FAERS Safety Report 8914961 (Version 2)
Quarter: 2012Q4

REPORT INFORMATION
  Report Type: 
  Country: US (occurrence: US)
  Receive Date: 20121117
  Receipt Date: 20121120
  Transmission Date: 20130627
  Serious: No
  Sender: FDA-Public Use
  Company Number: US-009507513-1210USA011747

PATIENT
  Sex: Female
  Weight: 74.83 kg

DRUGS (2)
  1. CLARITIN-D 24 HOUR [Suspect]
     Indication: FOOD ALLERGY
     Dosage: 10 mg, Once
     Route: 048
     Dates: start: 20120828
  2. BAYER LOW STRENGTH ASPIRIN REGIMEN [Concomitant]
     Indication: HYPERTENSION
     Dosage: UNK, Unknown

REACTIONS (2)
  - Dizziness [Recovered/Resolved]
  - Dyspnoea [Recovered/Resolved]
